FAERS Safety Report 16822631 (Version 2)
Quarter: 2019Q4

REPORT INFORMATION
  Report Type: Spontaneous
  Country: JP (occurrence: JP)
  Receive Date: 20190918
  Receipt Date: 20191024
  Transmission Date: 20200122
  Serious: Yes (Hospitalization)
  Sender: FDA-Public Use
  Company Number: JP-JNJFOC-20190911362

PATIENT
  Age: 71 Year
  Sex: Female

DRUGS (8)
  1. BONALON [Concomitant]
     Active Substance: ALENDRONATE SODIUM
  2. URSODEOXYCHOLIC ACID [Concomitant]
     Active Substance: URSODIOL
  3. RIVAROXABAN [Suspect]
     Active Substance: RIVAROXABAN
     Indication: ATRIAL FIBRILLATION
     Dosage: 15 MG
     Route: 048
  4. RIVAROXABAN [Suspect]
     Active Substance: RIVAROXABAN
     Dosage: DAILY DOSE 10 MG, QD
     Route: 048
  5. PREDNISOLONE. [Concomitant]
     Active Substance: PREDNISOLONE
  6. BAKTAR [Concomitant]
     Active Substance: SULFAMETHOXAZOLE\TRIMETHOPRIM
  7. CALBLOCK [Concomitant]
     Active Substance: AZELNIDIPINE
  8. TANATRIL [Concomitant]
     Active Substance: IMIDAPRIL

REACTIONS (1)
  - Autoimmune hepatitis [Unknown]
